FAERS Safety Report 8833273 (Version 3)
Quarter: 2012Q4

REPORT INFORMATION
  Report Type: Report from Study
  Country: US (occurrence: US)
  Receive Date: 20121010
  Receipt Date: 20121129
  Transmission Date: 20130627
  Serious: Yes (Other)
  Sender: FDA-Public Use
  Company Number: US-ABBOTT-12P-163-0972575-00

PATIENT
  Age: 51 Year
  Sex: Male

DRUGS (12)
  1. HUMIRA 40 MG/0.8 ML PEN [Suspect]
     Indication: CROHN^S DISEASE
     Dates: start: 20120817, end: 20120817
  2. HUMIRA 40 MG/0.8 ML PEN [Suspect]
     Dates: start: 20120831
  3. HUMIRA 40 MG/0.8 ML PEN [Suspect]
  4. ADDERALL [Concomitant]
     Indication: ATTENTION DEFICIT/HYPERACTIVITY DISORDER
  5. WELLBUTRIN XL [Concomitant]
     Indication: DEPRESSION
  6. LORAZEPAM [Concomitant]
     Indication: ANXIETY
  7. LISINOPRIL [Concomitant]
     Indication: HYPERTENSION
  8. CLONAZEPAM [Concomitant]
     Indication: SLEEP DISORDER
     Dosage: at night
  9. TRAZODONE [Concomitant]
     Indication: SLEEP DISORDER
     Dosage: At night
  10. METFORMIN [Concomitant]
     Indication: TYPE 2 DIABETES MELLITUS
  11. TESTOSTERONE [Concomitant]
     Indication: HYPOGONADISM
     Route: 050
  12. RESTORIL [Concomitant]
     Indication: INSOMNIA
     Dosage: At night

REACTIONS (23)
  - Abscess intestinal [Not Recovered/Not Resolved]
  - Fatigue [Not Recovered/Not Resolved]
  - Rash [Recovered/Resolved]
  - Depression [Not Recovered/Not Resolved]
  - Injection site swelling [Not Recovered/Not Resolved]
  - Fatigue [Unknown]
  - Dizziness [Unknown]
  - Decreased appetite [Unknown]
  - Contusion [Unknown]
  - Skin atrophy [Unknown]
  - Asthenia [Unknown]
  - Dysuria [Unknown]
  - Dyspnoea [Unknown]
  - Weight decreased [Unknown]
  - Weight increased [Unknown]
  - Visual impairment [Unknown]
  - Erythema [Not Recovered/Not Resolved]
  - Weight bearing difficulty [Not Recovered/Not Resolved]
  - Pain in extremity [Not Recovered/Not Resolved]
  - Oedema peripheral [Not Recovered/Not Resolved]
  - Back pain [Unknown]
  - Pain in extremity [Not Recovered/Not Resolved]
  - Localised infection [Not Recovered/Not Resolved]
